FAERS Safety Report 18716699 (Version 2)
Quarter: 2021Q1

REPORT INFORMATION
  Report Type: Spontaneous
  Country: FR (occurrence: FR)
  Receive Date: 20210108
  Receipt Date: 20210207
  Transmission Date: 20210419
  Serious: Yes (Hospitalization)
  Sender: FDA-Public Use
  Company Number: FR-TAKEDA-2021TUS000864

PATIENT
  Age: 78 Year
  Sex: Female
  Weight: 58 kg

DRUGS (3)
  1. VELCADE [Suspect]
     Active Substance: BORTEZOMIB
     Indication: PLASMA CELL MYELOMA
     Dosage: 4.24 MILLIGRAM, 1/WEEK
     Route: 058
     Dates: start: 20201013, end: 20201027
  2. DARZALEX [Suspect]
     Active Substance: DARATUMUMAB
     Indication: PLASMA CELL MYELOMA
     Dosage: 928 MILLIGRAM, 1/WEEK
     Route: 041
     Dates: start: 20201013, end: 20201020
  3. DARZALEX [Suspect]
     Active Substance: DARATUMUMAB
     Dosage: 1856 MILLIGRAM
     Route: 041
     Dates: start: 20201014, end: 20201021

REACTIONS (2)
  - General physical health deterioration [Recovered/Resolved]
  - Confusional state [Recovered/Resolved]

NARRATIVE: CASE EVENT DATE: 202010
